FAERS Safety Report 4797275-6 (Version None)
Quarter: 2005Q4

REPORT INFORMATION
  Report Type: 
  Country: None (occurrence: None)
  Receive Date: 20051013
  Receipt Date: 20051011
  Transmission Date: 20060501
  Serious: Yes (Hospitalization, Other)
  Sender: FDA-Public Use
  Company Number: US-GLAXOSMITHKLINE-A0577845A

PATIENT
  Age: 56 Year
  Sex: Female

DRUGS (5)
  1. PAXIL [Suspect]
     Indication: DRUG USE FOR UNKNOWN INDICATION
     Route: 048
  2. POTASSIUM [Concomitant]
  3. LOPRESSOR [Concomitant]
  4. MARINOL [Concomitant]
  5. LAMICTAL [Concomitant]
     Indication: BIPOLAR DISORDER

REACTIONS (5)
  - ACTIVITIES OF DAILY LIVING IMPAIRED [None]
  - ANOREXIA [None]
  - CONVULSION [None]
  - DISORIENTATION [None]
  - WEIGHT DECREASED [None]
